FAERS Safety Report 25282439 (Version 1)
Quarter: 2025Q2

REPORT INFORMATION
  Report Type: Spontaneous
  Country: US (occurrence: US)
  Receive Date: 20250508
  Receipt Date: 20250508
  Transmission Date: 20250717
  Serious: Yes (Other)
  Sender: CSL BEHRING
  Company Number: US-BEH-2025203606

PATIENT
  Age: 73 Year
  Sex: Female
  Weight: 45.805 kg

DRUGS (3)
  1. HAEGARDA [Suspect]
     Active Substance: HUMAN C1-ESTERASE INHIBITOR
     Indication: Hereditary angioedema
     Dosage: 2700 IU, BIW
     Route: 058
     Dates: start: 202504
  2. HAEGARDA [Suspect]
     Active Substance: HUMAN C1-ESTERASE INHIBITOR
     Indication: Prophylaxis
  3. FIRAZYR [Concomitant]
     Active Substance: ICATIBANT ACETATE

REACTIONS (2)
  - Hereditary angioedema [Unknown]
  - Weight increased [Unknown]

NARRATIVE: CASE EVENT DATE: 20250418
